FAERS Safety Report 13151521 (Version 3)
Quarter: 2017Q1

REPORT INFORMATION
  Report Type: Report from Study
  Country: US (occurrence: US)
  Receive Date: 20170125
  Receipt Date: 20170126
  Transmission Date: 20170428
  Serious: Yes (Hospitalization)
  Sender: FDA-Public Use
  Company Number: US-TEVA-732521USA

PATIENT
  Age: 69 Year
  Sex: Male

DRUGS (3)
  1. IDARUBICIN [Suspect]
     Active Substance: IDARUBICIN
     Indication: ACUTE MYELOID LEUKAEMIA
     Dosage: 12 MG/M2 DAILY;
     Route: 042
     Dates: start: 20170105
  2. CYTARABINE. [Suspect]
     Active Substance: CYTARABINE
     Indication: ACUTE MYELOID LEUKAEMIA
     Route: 042
     Dates: start: 20170105
  3. OMACETAXINE [Suspect]
     Active Substance: OMACETAXINE
     Indication: ACUTE MYELOID LEUKAEMIA
     Dosage: 8 MILLIGRAM DAILY;
     Route: 058
     Dates: start: 20170105, end: 20170112

REACTIONS (2)
  - Sepsis [Unknown]
  - Acute coronary syndrome [Unknown]

NARRATIVE: CASE EVENT DATE: 20170115
